FAERS Safety Report 16758233 (Version 1)
Quarter: 2019Q3

REPORT INFORMATION
  Report Type: Spontaneous
  Country: US (occurrence: US)
  Receive Date: 20190830
  Receipt Date: 20190830
  Transmission Date: 20191005
  Serious: Yes (Other)
  Sender: FDA-Public Use
  Company Number: US-ASTRAZENECA-2019SF22568

PATIENT
  Age: 24432 Day
  Sex: Female
  Weight: 59 kg

DRUGS (2)
  1. PULMICORT FLEXHALER [Suspect]
     Active Substance: BUDESONIDE
     Indication: DYSPNOEA
     Dosage: 90 UG, ONE PUFF TWICE A DAY
     Route: 055
     Dates: start: 20190818, end: 20190821
  2. PULMICORT FLEXHALER [Suspect]
     Active Substance: BUDESONIDE
     Indication: BRONCHITIS
     Dosage: 90 UG, ONE PUFF TWICE A DAY
     Route: 055
     Dates: start: 20190818, end: 20190821

REACTIONS (6)
  - Pneumonitis [Recovered/Resolved]
  - Drug ineffective [Not Recovered/Not Resolved]
  - Device failure [Unknown]
  - Dyspnoea [Not Recovered/Not Resolved]
  - Intentional product misuse [Recovered/Resolved]
  - Product dose omission [Not Recovered/Not Resolved]

NARRATIVE: CASE EVENT DATE: 20190818
